FAERS Safety Report 13607818 (Version 2)
Quarter: 2017Q2

REPORT INFORMATION
  Report Type: Spontaneous
  Country: AT (occurrence: AT)
  Receive Date: 20170602
  Receipt Date: 20170613
  Transmission Date: 20170830
  Serious: Yes (Death)
  Sender: FDA-Public Use
  Company Number: AT-TAIHO ONCOLOGY INC-JPTT170461

PATIENT
  Age: 64 Year
  Sex: Male
  Weight: 58 kg

DRUGS (4)
  1. LONSURF [Suspect]
     Active Substance: TIPIRACIL HYDROCHLORIDE\TRIFLURIDINE
     Indication: PANCREATIC CARCINOMA
     Dosage: 60MG (35MG/M2) BID, ON DAYS 1-5 AND 8-12 OF EACH 28-DAY CYCLE
     Route: 048
     Dates: start: 2015
  2. LONSURF [Suspect]
     Active Substance: TIPIRACIL HYDROCHLORIDE\TRIFLURIDINE
     Indication: OFF LABEL USE
     Dosage: UNK MG (30MG/M2) BID, ON DAYS 1-5 AND 8-12 OF EACH 28-DAY CYCLE
     Route: 048
     Dates: end: 2016
  3. CALCIUM +VIT D [Concomitant]
     Active Substance: CALCIUM\VITAMIN D
     Indication: METASTASES TO BONE
     Dosage: UNK
     Route: 048
  4. DENOSUMAB [Concomitant]
     Active Substance: DENOSUMAB
     Indication: METASTASES TO BONE
     Dosage: UNK
     Route: 048

REACTIONS (5)
  - Diarrhoea [Unknown]
  - Nausea [Unknown]
  - Malignant neoplasm progression [Fatal]
  - Neutropenia [Unknown]
  - Dysphagia [Unknown]

NARRATIVE: CASE EVENT DATE: 2015
